FAERS Safety Report 23539931 (Version 1)
Quarter: 2024Q1

REPORT INFORMATION
  Report Type: Report from Study
  Country: NL (occurrence: NL)
  Receive Date: 20240219
  Receipt Date: 20240219
  Transmission Date: 20240410
  Serious: Yes (Other)
  Sender: FDA-Public Use
  Company Number: NL-MYLANLABS-2023M1125822

PATIENT
  Sex: Male

DRUGS (1)
  1. GLATIRAMER ACETATE [Suspect]
     Active Substance: GLATIRAMER ACETATE
     Indication: Multiple sclerosis relapse
     Dosage: 3XW (3.00 X PER WEEK)
     Route: 058

REACTIONS (5)
  - Myocardial infarction [Unknown]
  - Panic attack [Unknown]
  - Therapy interrupted [Unknown]
  - Underdose [Unknown]
  - Circumstance or information capable of leading to medication error [Unknown]

NARRATIVE: CASE EVENT DATE: 20230401
